FAERS Safety Report 9090612 (Version 1)
Quarter: 2013Q1

REPORT INFORMATION
  Report Type: Spontaneous
  Country: JP (occurrence: JP)
  Receive Date: 20130131
  Receipt Date: 20130131
  Transmission Date: 20140127
  Serious: Yes (Disabling, Other)
  Sender: FDA-Public Use
  Company Number: JP-ROCHE-GNE294014

PATIENT
  Age: 70 Year
  Sex: Male

DRUGS (3)
  1. ALTEPLASE [Suspect]
     Indication: EMBOLIC STROKE
     Dosage: 0.6 MG/KG, 10%AS BOLUS
     Route: 040
     Dates: start: 20090714, end: 20090714
  2. ALTEPLASE [Suspect]
     Indication: CEREBRAL ARTERY OCCLUSION
  3. RADICUT [Concomitant]
     Indication: PRODUCT USED FOR UNKNOWN INDICATION
     Dosage: 60 MG, UNK
     Route: 041
     Dates: start: 20090714, end: 20090715

REACTIONS (5)
  - Cerebral haemorrhage [Recovered/Resolved with Sequelae]
  - Convulsion [Unknown]
  - Coma [Unknown]
  - Brain injury [Unknown]
  - Dementia [Unknown]
